FAERS Safety Report 23891481 (Version 3)
Quarter: 2024Q3

REPORT INFORMATION
  Report Type: Report from Study
  Country: US (occurrence: US)
  Receive Date: 20240523
  Receipt Date: 20240731
  Transmission Date: 20241017
  Serious: Yes (Other)
  Sender: ABBVIE
  Company Number: US-ABBVIE-5771232

PATIENT
  Age: 49 Year
  Sex: Female
  Weight: 52 kg

DRUGS (1)
  1. HUMIRA [Suspect]
     Active Substance: ADALIMUMAB
     Indication: Product used for unknown indication
     Route: 058

REACTIONS (12)
  - Ureteric repair [Recovering/Resolving]
  - Lupus-like syndrome [Recovering/Resolving]
  - Renal injury [Recovering/Resolving]
  - Polyarthritis [Recovered/Resolved]
  - Arthritis [Recovering/Resolving]
  - Renal disorder [Recovering/Resolving]
  - Nephritis [Recovering/Resolving]
  - White blood cell count decreased [Not Recovered/Not Resolved]
  - Swelling [Recovered/Resolved]
  - Renal impairment [Recovering/Resolving]
  - Rash papular [Unknown]
  - Rash [Unknown]

NARRATIVE: CASE EVENT DATE: 20230101
